FAERS Safety Report 18200383 (Version 1)
Quarter: 2020Q3

REPORT INFORMATION
  Report Type: Spontaneous
  Country: US (occurrence: US)
  Receive Date: 20200827
  Receipt Date: 20200827
  Transmission Date: 20201103
  Serious: Yes (Hospitalization, Other)
  Sender: FDA-Public Use
  Company Number: US-MTPC-MTDA2020-0061543

PATIENT
  Age: 66 Year
  Sex: Male

DRUGS (1)
  1. RADICAVA [Suspect]
     Active Substance: EDARAVONE
     Indication: AMYOTROPHIC LATERAL SCLEROSIS
     Dosage: 60 MILLIGRAM, OVER 60 MINS QD FOR 10 DAYS OUT OF A 14 DAY WINDOW, FOLLOWED BY 14 DAYS OFF
     Route: 042
     Dates: start: 20200629

REACTIONS (8)
  - Sleep disorder [Unknown]
  - Decreased appetite [Unknown]
  - Syncope [Unknown]
  - Catheter site rash [Unknown]
  - Catheter removal [Recovered/Resolved]
  - Dehydration [Recovered/Resolved]
  - Thrombosis [Unknown]
  - Central venous catheterisation [Recovered/Resolved]

NARRATIVE: CASE EVENT DATE: 20200813
